FAERS Safety Report 6151311-3 (Version None)
Quarter: 2009Q2

REPORT INFORMATION
  Report Type: 
  Country: None (occurrence: None)
  Receive Date: 20090410
  Receipt Date: 20090401
  Transmission Date: 20091009
  Serious: Yes (Hospitalization)
  Sender: FDA-Public Use
  Company Number: PHHO2009DE04346

PATIENT
  Sex: Female

DRUGS (33)
  1. NEORAL [Suspect]
     Indication: RENAL TRANSPLANT
     Dosage: 100 MG, BID
     Route: 048
     Dates: start: 20030921
  2. NEORAL [Suspect]
     Dosage: 75 MG, BID
     Route: 048
     Dates: start: 20030930
  3. NEORAL [Suspect]
     Dosage: BETWEEN 60 MG BID AND 200 MG BID
     Route: 048
     Dates: start: 20031010, end: 20031211
  4. NEORAL [Suspect]
     Dosage: 140 MG / DAY
     Route: 048
     Dates: start: 20031120
  5. MYCOPHENOLATE MOFETIL [Suspect]
     Indication: RENAL TRANSPLANT
     Dosage: 1 G, BID
     Route: 048
     Dates: start: 20030921, end: 20031016
  6. MYCOPHENOLATE MOFETIL [Suspect]
     Dosage: 1000 MG / DAY
     Route: 048
     Dates: start: 20031022
  7. MYCOPHENOLATE MOFETIL [Suspect]
     Dosage: 1 G, BID
     Route: 048
     Dates: start: 20040311
  8. PREDNISOLONE [Suspect]
     Indication: RENAL TRANSPLANT
     Dosage: 250 MG, TID
     Route: 042
     Dates: start: 20030921, end: 20030921
  9. PREDNISOLONE [Suspect]
     Dosage: 250 MG, ONCE/SINGLE
     Route: 042
     Dates: start: 20030922, end: 20030922
  10. PREDNISOLONE [Suspect]
     Dosage: 100 MG / DAY
     Route: 048
     Dates: start: 20030922
  11. PREDNISOLONE [Suspect]
     Dosage: 75 MG / DAY
     Route: 048
     Dates: start: 20030925
  12. PREDNISOLONE [Suspect]
     Dosage: 50 MG / DAY
     Route: 048
     Dates: start: 20030928
  13. PREDNISOLONE [Suspect]
     Dosage: 250 MG / DAY
     Route: 042
     Dates: start: 20030930
  14. PREDNISOLONE [Suspect]
     Dosage: 35 MG, ONCE/SINGLE
     Route: 048
     Dates: start: 20030930
  15. PREDNISOLONE [Suspect]
     Dosage: 100 MG / DAY
     Route: 048
     Dates: start: 20031003
  16. DACLIZUMAB [Concomitant]
     Indication: RENAL TRANSPLANT
     Dosage: 100 MG
     Route: 042
     Dates: start: 20030921
  17. DACLIZUMAB [Concomitant]
     Dosage: 50 MG / 2 WEEKS
     Route: 042
     Dates: start: 20031004
  18. DACLIZUMAB [Concomitant]
     Dosage: 55 MG / 2 WEEKS
     Route: 042
     Dates: start: 20031103
  19. EINSALPHA [Concomitant]
  20. DREISAVIT N [Concomitant]
  21. NORVASC [Concomitant]
  22. PANTOZOL [Concomitant]
  23. METOPROLOL SUCCINATE [Concomitant]
  24. LASIX [Concomitant]
  25. ACTONEL [Concomitant]
  26. AMPHOTERICIN B [Concomitant]
  27. CIPROFLOXACIN HCL [Concomitant]
  28. PRAVASTATIN SODIUM [Concomitant]
  29. AMPICILLIN AND SULBACTAM [Concomitant]
  30. NOVALGIN [Concomitant]
  31. GANCICLOVIR [Concomitant]
  32. NEORECORMON [Concomitant]
  33. ACTRAPID HUMAN [Concomitant]

REACTIONS (8)
  - ENTEROCOCCAL INFECTION [None]
  - KIDNEY TRANSPLANT REJECTION [None]
  - LYMPHOCELE [None]
  - LYMPHOCELE MARSUPIALISATION [None]
  - URINARY TRACT INFECTION [None]
  - WOUND DEHISCENCE [None]
  - WOUND INFECTION BACTERIAL [None]
  - WOUND TREATMENT [None]
